FAERS Safety Report 4617076-9 (Version None)
Quarter: 2005Q1

REPORT INFORMATION
  Report Type: 
  Country: None (occurrence: None)
  Receive Date: 20050323
  Receipt Date: 20050311
  Transmission Date: 20050727
  Serious: Yes (Other)
  Sender: FDA-Public Use
  Company Number: US-GLAXOSMITHKLINE-A0549357A

PATIENT
  Age: 83 Year
  Sex: Female
  Weight: 84.1 kg

DRUGS (5)
  1. ECOTRIN REGULAR STRENGTH TABLETS [Suspect]
     Route: 048
     Dates: start: 20041001
  2. NEXIUM [Concomitant]
     Dosage: 40MG PER DAY
     Route: 048
  3. TOPROL-XL [Concomitant]
     Dosage: 50MG PER DAY
     Route: 048
  4. LIPITOR [Concomitant]
     Indication: BLOOD CHOLESTEROL INCREASED
     Dosage: 20MG PER DAY
     Route: 048
  5. AVANDAMET [Concomitant]
     Route: 048

REACTIONS (2)
  - BLEEDING TIME PROLONGED [None]
  - DRUG INEFFECTIVE [None]
